FAERS Safety Report 8052586-6 (Version None)
Quarter: 2012Q1

REPORT INFORMATION
  Report Type: 
  Country: None (occurrence: None)
  Receive Date: 20120118
  Receipt Date: 20120111
  Transmission Date: 20120608
  Serious: Yes (Hospitalization, Other)
  Sender: FDA-Public Use
  Company Number: US-SHIRE-ALL1-2012-00166

PATIENT
  Sex: Female
  Weight: 52.154 kg

DRUGS (4)
  1. CARBATROL [Suspect]
     Dosage: 400 MG, 1X/DAY:PM
     Route: 048
     Dates: start: 20120107
  2. CARBATROL [Suspect]
     Dosage: 400 MG, 1X/DAY:PM
     Route: 048
     Dates: start: 19950101, end: 20111201
  3. CARBATROL [Suspect]
     Dosage: 300 MG, 1X/DAY:AM
     Route: 048
     Dates: start: 20120107
  4. CARBATROL [Suspect]
     Indication: HYDROCEPHALUS
     Dosage: 300 MG, 1X/DAY:AM
     Route: 048
     Dates: start: 19950101, end: 20111201

REACTIONS (7)
  - BLOOD CHOLESTEROL INCREASED [None]
  - OFF LABEL USE [None]
  - LOSS OF CONSCIOUSNESS [None]
  - CONCUSSION [None]
  - HYPERTENSION [None]
  - SICK SINUS SYNDROME [None]
  - DIABETES MELLITUS [None]
